FAERS Safety Report 7130535-2 (Version None)
Quarter: 2010Q4

REPORT INFORMATION
  Report Type: 
  Country: None (occurrence: None)
  Receive Date: 20101029
  Receipt Date: 20100401
  Transmission Date: 20110411
  Serious: No
  Sender: FDA-Public Use
  Company Number: US-001790

PATIENT
  Sex: Male
  Weight: 85.7298 kg

DRUGS (4)
  1. FIRMAGON [Suspect]
     Indication: PROSTATE CANCER
     Dosage: (240 MG 1X/MONTH SUBCUTANEOUS)
     Route: 058
     Dates: start: 20100324, end: 20100324
  2. HYDROCHLOROTHIAZIDE [Concomitant]
  3. SYNTHROID [Concomitant]
  4. UROXATRAL [Concomitant]

REACTIONS (3)
  - INDURATION [None]
  - INJECTION SITE ERYTHEMA [None]
  - INJECTION SITE NODULE [None]
